FAERS Safety Report 5390311-8 (Version None)
Quarter: 2007Q3

REPORT INFORMATION
  Report Type: 
  Country: None (occurrence: None)
  Receive Date: 20070718
  Receipt Date: 20070716
  Transmission Date: 20080115
  Serious: Yes (Other)
  Sender: FDA-Public Use
  Company Number: NL-ASTRAZENECA-2007AC01298

PATIENT
  Age: 19236 Day
  Sex: Female
  Weight: 96 kg

DRUGS (2)
  1. SELOKEEN ZOC [Suspect]
     Indication: HYPERTENSION
     Dates: start: 19950101
  2. CRESTOR [Concomitant]
     Dates: start: 19950101

REACTIONS (3)
  - LISTLESS [None]
  - MALAISE [None]
  - PAIN IN EXTREMITY [None]
